FAERS Safety Report 7559246-6 (Version None)
Quarter: 2011Q2

REPORT INFORMATION
  Report Type: 
  Country: None (occurrence: None)
  Receive Date: 20110621
  Receipt Date: 20110608
  Transmission Date: 20111010
  Serious: Yes (Hospitalization, Other)
  Sender: FDA-Public Use
  Company Number: US-ELI_LILLY_AND_COMPANY-US201106003800

PATIENT
  Sex: Female

DRUGS (4)
  1. SINGULAIR [Concomitant]
  2. FORTEO [Suspect]
     Indication: OSTEOPOROSIS
     Dosage: 20 UG, QD
     Route: 065
     Dates: end: 20110309
  3. FORTEO [Suspect]
     Dosage: 20 UG, QD
     Route: 065
  4. SYNTHROID [Concomitant]

REACTIONS (10)
  - RASH [None]
  - KNEE ARTHROPLASTY [None]
  - MOVEMENT DISORDER [None]
  - TENDON RUPTURE [None]
  - HYPERSENSITIVITY [None]
  - DRUG DOSE OMISSION [None]
  - INJECTION SITE PAIN [None]
  - FEMUR FRACTURE [None]
  - URTICARIA [None]
  - MEDICAL DEVICE SITE REACTION [None]
